FAERS Safety Report 5716665-8 (Version None)
Quarter: 2008Q2

REPORT INFORMATION
  Report Type: 
  Country: None (occurrence: None)
  Receive Date: 20080424
  Receipt Date: 20070423
  Transmission Date: 20081010
  Serious: No
  Sender: FDA-Public Use
  Company Number: US-BAYER-200710589BWH

PATIENT
  Age: 56 Year
  Sex: Male

DRUGS (10)
  1. LEVITRA [Suspect]
     Indication: ERECTILE DYSFUNCTION
     Dosage: TOTAL DAILY DOSE: 20 MG  UNIT DOSE: 20 MG
     Route: 048
     Dates: start: 20070219
  2. HYDROCODONE BITARTRATE [Concomitant]
  3. POTASSIUM CHLORIDE [Concomitant]
  4. CELEXA [Concomitant]
  5. NEXIUM [Concomitant]
  6. ZOCOR [Concomitant]
  7. WARFARIN SODIUM [Concomitant]
  8. FUROSEMIDE [Concomitant]
  9. URSODIOL [Concomitant]
  10. LOVENOX [Concomitant]
     Indication: CARDIAC ABLATION
     Dates: start: 20070213

REACTIONS (1)
  - ERECTILE DYSFUNCTION [None]
